FAERS Safety Report 9804222 (Version 2)
Quarter: 2014Q2

REPORT INFORMATION
  Report Type: Spontaneous
  Country: US (occurrence: None)
  Receive Date: 20140106
  Receipt Date: 20140519
  Transmission Date: 20141212
  Serious: No
  Sender: FDA-Public Use
  Company Number: 2013-00168

PATIENT
  Sex: Male

DRUGS (2)
  1. ZICAM INTENSE SINUS RELIEF NASAL GEL [Suspect]
     Indication: NASOPHARYNGITIS
     Dosage: 1 SPRAY EACH NOSTRIL (A FEW MONTHS AGO)
  2. ZICAM INTENSE SINUS RELIEF NASAL GEL [Suspect]
     Indication: INFLUENZA
     Dosage: 1 SPRAY EACH NOSTRIL (A FEW MONTHS AGO)

REACTIONS (2)
  - Hypogeusia [None]
  - Hyposmia [None]
